FAERS Safety Report 6431695-9 (Version None)
Quarter: 2009Q4

REPORT INFORMATION
  Report Type: 
  Country: None (occurrence: None)
  Receive Date: 20091103
  Receipt Date: 20091019
  Transmission Date: 20100525
  Serious: Yes (Hospitalization)
  Sender: FDA-Public Use
  Company Number: 02100-JPN-07-0025

PATIENT
  Age: 62 Year
  Sex: Female
  Weight: 66 kg

DRUGS (4)
  1. PLETAL [Suspect]
     Indication: CEREBRAL INFARCTION
     Dosage: 81 MG, QD ORAL
     Route: 048
     Dates: start: 20050219
  2. LASIX [Concomitant]
  3. NORVASC (AMLODIPONE BESILATE) [Concomitant]
  4. MEVATORTE (PRAVASTATIN SODIUM) [Concomitant]

REACTIONS (3)
  - CHOLECYSTITIS ACUTE [None]
  - GASTRIC ULCER [None]
  - SPLENOMEGALY [None]
